FAERS Safety Report 11806402 (Version 1)
Quarter: 2015Q4

REPORT INFORMATION
  Report Type: Spontaneous
  Country: US (occurrence: US)
  Receive Date: 20151207
  Receipt Date: 20151207
  Transmission Date: 20160305
  Serious: Yes (Hospitalization)
  Sender: FDA-Public Use
  Company Number: US-DYAX CORP.-2015DX000495

PATIENT
  Age: 54 Year
  Sex: Female

DRUGS (2)
  1. KALBITOR [Suspect]
     Active Substance: ECALLANTIDE
     Indication: HEREDITARY ANGIOEDEMA
     Route: 058
     Dates: start: 20151119, end: 20151119
  2. KALBITOR [Suspect]
     Active Substance: ECALLANTIDE
     Route: 058

REACTIONS (9)
  - Tongue disorder [Recovering/Resolving]
  - Pharyngeal erythema [Recovering/Resolving]
  - Dysphonia [Unknown]
  - Tongue discolouration [Recovering/Resolving]
  - Candida infection [Recovering/Resolving]
  - Foot operation [Recovered/Resolved]
  - Pharyngeal oedema [Recovering/Resolving]
  - Skin exfoliation [Recovering/Resolving]
  - Off label use [Recovered/Resolved]

NARRATIVE: CASE EVENT DATE: 20151119
